FAERS Safety Report 18143614 (Version 1)
Quarter: 2020Q3

REPORT INFORMATION
  Report Type: Spontaneous
  Country: US (occurrence: US)
  Receive Date: 20200813
  Receipt Date: 20200813
  Transmission Date: 20201103
  Serious: No
  Sender: FDA-Public Use
  Company Number: US-TARO-2019TAR00625

PATIENT
  Sex: Female

DRUGS (1)
  1. ADAPALENE GEL 0.3% [Suspect]
     Active Substance: ADAPALENE
     Dosage: UNK
     Route: 061

REACTIONS (1)
  - Application site dryness [Not Recovered/Not Resolved]
